FAERS Safety Report 24712348 (Version 2)
Quarter: 2024Q4

REPORT INFORMATION
  Report Type: Report from Study
  Country: US (occurrence: US)
  Receive Date: 20241209
  Receipt Date: 20241219
  Transmission Date: 20250115
  Serious: Yes (Disabling)
  Sender: ALNYLAM PHARMACEUTICALS
  Company Number: US-ALNYLAM PHARMACEUTICALS, INC.-ALN-2024-006808

PATIENT

DRUGS (20)
  1. ONPATTRO [Suspect]
     Active Substance: PATISIRAN SODIUM
     Indication: Cardiac amyloidosis
     Dosage: 28.7 MILLIGRAM, Q3W
     Route: 042
     Dates: start: 20230504, end: 20230504
  2. ONPATTRO [Suspect]
     Active Substance: PATISIRAN SODIUM
     Dosage: 27.4 MILLIGRAM, Q3W
     Route: 042
     Dates: start: 20241121, end: 20241121
  3. ELIQUIS [Concomitant]
     Active Substance: APIXABAN
     Indication: Deep vein thrombosis
     Dosage: 5 MILLIGRAM, BID
     Route: 048
  4. LIPITOR [Concomitant]
     Active Substance: ATORVASTATIN CALCIUM
     Indication: Cardiovascular event prophylaxis
     Dosage: 80 MILLIGRAM, QD
     Route: 048
  5. BREZTRI [Concomitant]
     Active Substance: BUDESONIDE\FORMOTEROL\GLYCOPYRROLATE
     Indication: Chronic obstructive pulmonary disease
     Dosage: INHALE INTO THE LUNGS (160/4.8/9)
  6. AVODART [Concomitant]
     Active Substance: DUTASTERIDE
     Indication: Benign prostatic hyperplasia
     Dosage: 0.5 MILLIGRAM
     Route: 048
  7. VITAMIN A [Concomitant]
     Active Substance: VITAMIN A
     Indication: Skin disorder
     Dosage: 3000 INTERNATIONAL UNIT, QD (30 EACH)
     Route: 065
  8. NORCO [Concomitant]
     Active Substance: ACETAMINOPHEN\HYDROCODONE BITARTRATE
     Indication: Pain
     Dosage: 1 DOSAGE FORM, PRN EVERY 6 HOURS (7.5-325 MG)
     Route: 048
  9. LEVOTHYROXINE [Concomitant]
     Active Substance: LEVOTHYROXINE
     Indication: Hypothyroidism
     Dosage: 150 MICROGRAM, QD
     Route: 048
  10. ZOFRAN [Concomitant]
     Active Substance: ONDANSETRON HYDROCHLORIDE
     Indication: Nausea
     Dosage: 4 MILLIGRAM, PRN EVERY 6 HOURS (20 TABLET)
     Route: 048
  11. ZOFRAN [Concomitant]
     Active Substance: ONDANSETRON HYDROCHLORIDE
     Indication: Vomiting
  12. MICRO K [Concomitant]
     Indication: Blood potassium decreased
     Dosage: 10 MILLIEQUIVALENT, BID (180 CAPSULE)
     Route: 048
  13. VYNDAMAX [Concomitant]
     Active Substance: TAFAMIDIS
     Indication: Cardiac disorder
     Dosage: 61 MILLIGRAM, QD
     Route: 048
  14. FLOMAX [Concomitant]
     Active Substance: TAMSULOSIN HYDROCHLORIDE
     Indication: Benign prostatic hyperplasia
     Dosage: 0.4 MILLIGRAM, QD (NIGHTLY)
     Route: 048
  15. DEMADEX [Concomitant]
     Active Substance: TORSEMIDE
     Indication: Diuretic therapy
     Dosage: 20 MILLIGRAM, BID (TAKE 2 TABLETS (40 MG TOTAL))
     Route: 048
  16. ACETAMINOPHEN [Concomitant]
     Active Substance: ACETAMINOPHEN
     Indication: Premedication
     Dosage: 500 MILLIGRAM
     Route: 065
  17. DEXAMETHASONE [Concomitant]
     Active Substance: DEXAMETHASONE
     Indication: Premedication
     Dosage: 5 MILLIGRAM (10 MG/ML VIAL)
     Route: 065
  18. FAMOTIDINE [Concomitant]
     Active Substance: FAMOTIDINE
     Indication: Premedication
     Dosage: 20 MILLIGRAM (10 MG/ML) VIAL
     Route: 065
  19. DIPHENHYDRAMINE [Concomitant]
     Active Substance: DIPHENHYDRAMINE
     Indication: Premedication
     Dosage: 50 MILLIGRAM (50 MG/ML VIAL)
     Route: 065
  20. SODIUM CHLORIDE [Concomitant]
     Active Substance: SODIUM CHLORIDE
     Indication: Premedication
     Dosage: 30 MILLILITER
     Route: 065

REACTIONS (4)
  - Fall [Recovering/Resolving]
  - Humerus fracture [Recovering/Resolving]
  - Head injury [Recovering/Resolving]
  - Skin abrasion [Recovering/Resolving]

NARRATIVE: CASE EVENT DATE: 20241125
